FAERS Safety Report 18919135 (Version 1)
Quarter: 2021Q1

REPORT INFORMATION
  Report Type: Spontaneous
  Country: US (occurrence: US)
  Receive Date: 20210220
  Receipt Date: 20210220
  Transmission Date: 20210420
  Serious: Yes (Other)
  Sender: FDA-Public Use
  Company Number: US-UCBSA-2021006514

PATIENT
  Age: 41 Year
  Sex: Male

DRUGS (1)
  1. LEVETIRACETAM. [Suspect]
     Active Substance: LEVETIRACETAM
     Indication: PRODUCT USED FOR UNKNOWN INDICATION
     Dosage: UNK

REACTIONS (5)
  - Pain in extremity [Unknown]
  - Neck pain [Unknown]
  - Seizure [Unknown]
  - Muscle spasms [Unknown]
  - Choking sensation [Unknown]

NARRATIVE: CASE EVENT DATE: 202004
